FAERS Safety Report 9391513 (Version 1)
Quarter: 2013Q3

REPORT INFORMATION
  Report Type: Spontaneous
  Country: GB (occurrence: GB)
  Receive Date: 20130709
  Receipt Date: 20130709
  Transmission Date: 20140515
  Serious: Yes (Hospitalization)
  Sender: FDA-Public Use
  Company Number: PHFR2013GB003790

PATIENT
  Sex: 0

DRUGS (1)
  1. VOLTAROL [Suspect]
     Indication: PAIN
     Dosage: 1 PATCH
     Route: 062
     Dates: start: 20130531, end: 20130601

REACTIONS (2)
  - Thermal burn [Not Recovered/Not Resolved]
  - Off label use [Unknown]
